FAERS Safety Report 6584116-X (Version None)
Quarter: 2010Q1

REPORT INFORMATION
  Report Type: 
  Country: None (occurrence: None)
  Receive Date: 20100216
  Receipt Date: 20100201
  Transmission Date: 20100710
  Serious: No
  Sender: FDA-Public Use
  Company Number: US-ABBOTT-10P-163-0618051-00

PATIENT
  Sex: Male
  Weight: 136.2 kg

DRUGS (17)
  1. SIMCOR [Suspect]
     Indication: LOW DENSITY LIPOPROTEIN INCREASED
     Dosage: 500/20 MG AT BEDTIME
     Dates: start: 20090701
  2. SIMCOR [Suspect]
     Dosage: 1000/20 MG AT BETIME
  3. ZESTRIL [Concomitant]
     Indication: DRUG USE FOR UNKNOWN INDICATION
  4. ZETIA [Concomitant]
     Indication: DRUG USE FOR UNKNOWN INDICATION
  5. CARAFATE [Concomitant]
     Indication: DRUG USE FOR UNKNOWN INDICATION
  6. IMDUR [Concomitant]
     Indication: DRUG USE FOR UNKNOWN INDICATION
  7. COREG [Concomitant]
     Indication: DRUG USE FOR UNKNOWN INDICATION
  8. EFFIENT [Concomitant]
     Indication: DRUG USE FOR UNKNOWN INDICATION
  9. NORVASC [Concomitant]
     Indication: DRUG USE FOR UNKNOWN INDICATION
  10. PEPCID [Concomitant]
     Indication: DRUG USE FOR UNKNOWN INDICATION
  11. ASPIRIN [Concomitant]
     Indication: DRUG USE FOR UNKNOWN INDICATION
  12. ULTRAM [Concomitant]
     Indication: DRUG USE FOR UNKNOWN INDICATION
  13. LASIX [Concomitant]
     Indication: DRUG USE FOR UNKNOWN INDICATION
  14. AVANDIA [Concomitant]
     Indication: DRUG USE FOR UNKNOWN INDICATION
  15. LANTUS [Concomitant]
     Indication: DRUG USE FOR UNKNOWN INDICATION
  16. NOVOLOG [Concomitant]
     Indication: DRUG USE FOR UNKNOWN INDICATION
  17. MULTI-VITAMIN [Concomitant]
     Indication: DRUG USE FOR UNKNOWN INDICATION

REACTIONS (6)
  - ACCIDENTAL OVERDOSE [None]
  - DYSPHAGIA [None]
  - FLUSHING [None]
  - FOREIGN BODY ASPIRATION [None]
  - MUSCLE SPASMS [None]
  - WRONG TECHNIQUE IN DRUG USAGE PROCESS [None]
